FAERS Safety Report 5598057-8 (Version None)
Quarter: 2008Q1

REPORT INFORMATION
  Report Type: 
  Country: None (occurrence: None)
  Receive Date: 20080116
  Receipt Date: 20080102
  Transmission Date: 20080703
  Serious: Yes (Hospitalization)
  Sender: FDA-Public Use
  Company Number: 02100-EUR-07-0187

PATIENT
  Age: 80 Year
  Sex: Male

DRUGS (2)
  1. CILOSTAZOL [Suspect]
     Indication: INTERMITTENT CLAUDICATION
     Dosage: 200 MG, ORAL
     Route: 048
     Dates: start: 20070503, end: 20070624
  2. CILOSTAZOL [Suspect]
     Indication: INTERMITTENT CLAUDICATION
     Dosage: 200 MG, ORAL
     Route: 048
     Dates: start: 20070801

REACTIONS (3)
  - ACCIDENT [None]
  - FALL [None]
  - HIP FRACTURE [None]
